FAERS Safety Report 4664702-4 (Version None)
Quarter: 2005Q2

REPORT INFORMATION
  Report Type: 
  Country: None (occurrence: None)
  Receive Date: 20050516
  Receipt Date: 20050330
  Transmission Date: 20051028
  Serious: Yes (Hospitalization, Other)
  Sender: FDA-Public Use
  Company Number: DEU-2005-0001253

PATIENT
  Age: 49 Year
  Sex: Male

DRUGS (1)
  1. OXYCODONE HCL [Suspect]
     Indication: DRUG USE FOR UNKNOWN INDICATION
     Dosage: 160 MG, TID, ORAL
     Route: 048

REACTIONS (4)
  - DRUG DEPENDENCE [None]
  - MEDICATION ERROR [None]
  - POLYSUBSTANCE DEPENDENCE [None]
  - SELF-MEDICATION [None]
